FAERS Safety Report 8616142-0 (Version None)
Quarter: 2012Q3

REPORT INFORMATION
  Report Type: 
  Country: None (occurrence: None)
  Receive Date: 20120823
  Receipt Date: 20120817
  Transmission Date: 20120928
  Serious: Yes (Other)
  Sender: FDA-Public Use
  Company Number: US-UCBSA-063893

PATIENT
  Age: 18 Year
  Sex: Female

DRUGS (1)
  1. CIMZIA [Suspect]
     Indication: CROHN'S DISEASE
     Dosage: COMPLETED INDUCTION DOSE
     Dates: start: 20120626

REACTIONS (4)
  - ABSCESS [None]
  - DRUG INEFFECTIVE [None]
  - FISTULA [None]
  - CROHN'S DISEASE [None]
